FAERS Safety Report 9826053 (Version 2)
Quarter: 2014Q1

REPORT INFORMATION
  Report Type: Report from Study
  Country: US (occurrence: US)
  Receive Date: 20140117
  Receipt Date: 20140310
  Transmission Date: 20141002
  Serious: Yes (Other)
  Sender: FDA-Public Use
  Company Number: US-ASTELLAS-2013EU011435

PATIENT
  Age: 59 Year
  Sex: Female
  Weight: 68.03 kg

DRUGS (3)
  1. BLINDED SOLIFENACIN-MIRABEGRON [Suspect]
     Indication: HYPERTONIC BLADDER
     Dosage: 3 DF, UID/QD
     Route: 048
     Dates: start: 20131016, end: 20140108
  2. BLINDED SOLIFENACIN-MIRABEGRON [Suspect]
     Dosage: 6 DF, UNKNOWN/D
     Route: 065
     Dates: start: 20131115, end: 20131115
  3. SOLIFENACIN [Suspect]
     Indication: HYPERTONIC BLADDER
     Dosage: 1 DF, UID/QD
     Route: 048
     Dates: start: 20130918, end: 20131015

REACTIONS (1)
  - Accidental overdose [Recovered/Resolved]
